FAERS Safety Report 5475486-4 (Version None)
Quarter: 2007Q4

REPORT INFORMATION
  Report Type: 
  Country: None (occurrence: None)
  Receive Date: 20071003
  Receipt Date: 20070921
  Transmission Date: 20080405
  Serious: Yes (Other)
  Sender: FDA-Public Use
  Company Number: GB-JNJFOC-20070905052

PATIENT
  Age: 66 Year
  Sex: Male

DRUGS (2)
  1. INFLIXIMAB [Suspect]
     Indication: PSORIATIC ARTHROPATHY
  2. ADALIMUMAB [Concomitant]
     Indication: PSORIATIC ARTHROPATHY

REACTIONS (2)
  - BASAL CELL CARCINOMA [None]
  - SERUM SICKNESS [None]
